FAERS Safety Report 11605726 (Version 1)
Quarter: 2015Q4

REPORT INFORMATION
  Report Type: Spontaneous
  Country: FR (occurrence: FR)
  Receive Date: 20151007
  Receipt Date: 20151007
  Transmission Date: 20160304
  Serious: Yes (Hospitalization)
  Sender: FDA-Public Use
  Company Number: FR-ABBVIE-15K-056-1474941-00

PATIENT
  Age: 26 Year
  Sex: Male

DRUGS (6)
  1. METHOTREXATE [Concomitant]
     Active Substance: METHOTREXATE
     Indication: PRODUCT USED FOR UNKNOWN INDICATION
  2. HUMIRA [Suspect]
     Active Substance: ADALIMUMAB
     Indication: CROHN^S DISEASE
     Route: 058
  3. CIMZIA [Suspect]
     Active Substance: CERTOLIZUMAB PEGOL
     Indication: PRODUCT USED FOR UNKNOWN INDICATION
     Route: 058
  4. CICLOSPORINE [Suspect]
     Active Substance: CYCLOSPORINE
     Indication: PRODUCT USED FOR UNKNOWN INDICATION
     Route: 048
  5. REMICADE [Suspect]
     Active Substance: INFLIXIMAB
     Indication: CROHN^S DISEASE
     Dosage: 10 MILLIGRAM/KILOGRAM
     Route: 065
     Dates: start: 2010, end: 201303
  6. IMUREL [Suspect]
     Active Substance: AZATHIOPRINE SODIUM
     Indication: CROHN^S DISEASE
     Route: 048
     Dates: start: 2010, end: 201303

REACTIONS (8)
  - Proctitis [Unknown]
  - Crohn^s disease [Unknown]
  - Drug dependence [Unknown]
  - Diffuse large B-cell lymphoma stage IV [Not Recovered/Not Resolved]
  - Skin necrosis [Unknown]
  - Pyrexia [Unknown]
  - C-reactive protein increased [Unknown]
  - Rectal stenosis [Unknown]

NARRATIVE: CASE EVENT DATE: 201303
